FAERS Safety Report 7372188-4 (Version None)
Quarter: 2011Q1

REPORT INFORMATION
  Report Type: 
  Country: None (occurrence: None)
  Receive Date: 20110311
  Receipt Date: 20110302
  Transmission Date: 20110831
  Serious: Yes (Hospitalization)
  Sender: FDA-Public Use
  Company Number: WAES 1103USA00984

PATIENT
  Age: 79 Year
  Sex: Male
  Weight: 77.1115 kg

DRUGS (11)
  1. DECADRON [Concomitant]
  2. TEMODAR [Suspect]
     Indication: GLIOBLASTOMA MULTIFORME
     Dosage: 100 MG/DAILY/PO
     Route: 048
     Dates: start: 20110210, end: 20110225
  3. TEMODAR [Suspect]
     Indication: GLIOBLASTOMA MULTIFORME
     Dosage: 100 MG/DAILY/PO
     Route: 048
     Dates: start: 20110201, end: 20110203
  4. AVASTIN [Suspect]
     Indication: GLIOBLASTOMA MULTIFORME
     Dosage: 773 MG/2WK/25DY/IV
     Route: 042
     Dates: start: 20110210, end: 20110225
  5. AVASTIN [Suspect]
     Indication: GLIOBLASTOMA MULTIFORME
     Dosage: 773 MG/2WK/25DY/IV
     Route: 042
     Dates: start: 20110201, end: 20110203
  6. KEPPRA [Concomitant]
  7. DEXAMETHASONE [Concomitant]
  8. VITAMINS (UNSPECIFIED) [Concomitant]
  9. CAP VORINOSTAT UNK [Suspect]
     Indication: GLIOBLASTOMA MULTIFORME
     Dosage: 400 MG/DAILY/PO
     Route: 048
     Dates: start: 20110201, end: 20110203
  10. ALBUTEROL [Concomitant]
  11. ZOFRAN [Concomitant]

REACTIONS (14)
  - LOBAR PNEUMONIA [None]
  - HYPOXIA [None]
  - CONFUSIONAL STATE [None]
  - HEART RATE INCREASED [None]
  - DIARRHOEA [None]
  - HYPOPHOSPHATAEMIA [None]
  - DEEP VEIN THROMBOSIS [None]
  - ATELECTASIS [None]
  - PLEURAL EFFUSION [None]
  - CLOSTRIDIUM TEST POSITIVE [None]
  - URINARY TRACT INFECTION [None]
  - BLOOD PRESSURE SYSTOLIC INCREASED [None]
  - HAEMOGLOBIN DECREASED [None]
  - HYPOKALAEMIA [None]
